FAERS Safety Report 8352793-9 (Version None)
Quarter: 2012Q1

REPORT INFORMATION
  Report Type: 
  Country: None (occurrence: None)
  Receive Date: 20120315
  Receipt Date: 20110503
  Transmission Date: 20120608
  Serious: No
  Sender: FDA-Public Use
  Company Number: PHHY2011US34935

PATIENT
  Age: 38 Year
  Sex: Female

DRUGS (8)
  1. VITAMIN D [Concomitant]
  2. AMBIEN [Concomitant]
  3. ALLEGRA [Concomitant]
  4. GILENYA [Suspect]
     Indication: MULTIPLE SCLEROSIS
     Dosage: 0.5 MG, QD, ORAL
     Route: 048
     Dates: start: 20110422
  5. DETROL [Concomitant]
  6. MELATONIN (MELATONIN) [Concomitant]
  7. NEURONTIN [Concomitant]
  8. TRIAMCINOLONE [Concomitant]

REACTIONS (3)
  - NAUSEA [None]
  - DIZZINESS [None]
  - PALPITATIONS [None]
